FAERS Safety Report 5268357-X (Version None)
Quarter: 2007Q1

REPORT INFORMATION
  Report Type: 
  Country: None (occurrence: None)
  Receive Date: 20070313
  Receipt Date: 20070227
  Transmission Date: 20070707
  Serious: Yes (Other)
  Sender: FDA-Public Use
  Company Number: 2007BI000719

PATIENT
  Sex: Female

DRUGS (9)
  1. NATALIZUMAB [Suspect]
     Indication: MULTIPLE SCLEROSIS
     Dosage: 300 MG; QM; IV
     Route: 042
     Dates: start: 20061206, end: 20070103
  2. DETROL LA [Concomitant]
  3. REQUIP [Concomitant]
  4. TRAZODONE HCL [Concomitant]
  5. PROVIGIL [Concomitant]
  6. SONATA [Concomitant]
  7. CALCIUM [Concomitant]
  8. EFFEXOR XR [Concomitant]
  9. MULTI-VITAMIN [Concomitant]

REACTIONS (13)
  - ANAPHYLACTOID REACTION [None]
  - CHEST PAIN [None]
  - FALL [None]
  - INFUSION RELATED REACTION [None]
  - NECK PAIN [None]
  - PHOTOPSIA [None]
  - PROCEDURAL HEADACHE [None]
  - PROCEDURAL HYPOTENSION [None]
  - PROCEDURAL NAUSEA [None]
  - PROCEDURAL PAIN [None]
  - PROCEDURAL VOMITING [None]
  - RESTLESS LEGS SYNDROME [None]
  - URINARY INCONTINENCE [None]
